FAERS Safety Report 23443245 (Version 2)
Quarter: 2024Q4

REPORT INFORMATION
  Report Type: Spontaneous
  Country: US (occurrence: US)
  Receive Date: 20240125
  Receipt Date: 20241017
  Transmission Date: 20250114
  Serious: No
  Sender: SANOFI AVENTIS
  Company Number: US-SANOFI-01909169

PATIENT
  Sex: Female
  Weight: 40 kg

DRUGS (1)
  1. LUMIZYME [Suspect]
     Active Substance: ALGLUCOSIDASE ALFA
     Dosage: 40 MG/KG
     Route: 042

REACTIONS (2)
  - Urinary hexose tetrasaccharide increased [Unknown]
  - Incorrect dose administered [Unknown]
